FAERS Safety Report 19747380 (Version 1)
Quarter: 2021Q3

REPORT INFORMATION
  Report Type: Spontaneous
  Country: US (occurrence: US)
  Receive Date: 20210826
  Receipt Date: 20210826
  Transmission Date: 20211014
  Serious: Yes (Hospitalization, Other)
  Sender: FDA-Public Use
  Company Number: US-UNITED THERAPEUTICS-UNT-2021-014807

PATIENT
  Age: 47 Year
  Sex: Female
  Weight: 68.03 kg

DRUGS (5)
  1. COUMADIN [Concomitant]
     Active Substance: WARFARIN SODIUM
     Indication: PRODUCT USED FOR UNKNOWN INDICATION
     Dosage: UNK
     Route: 065
  2. REMODULIN [Suspect]
     Active Substance: TREPROSTINIL
     Indication: PULMONARY ARTERIAL HYPERTENSION
     Dosage: UNK, CONTINUING
     Route: 058
     Dates: start: 20200512
  3. REMODULIN [Suspect]
     Active Substance: TREPROSTINIL
     Dosage: 0.074 ?G/KG, CONTINUING
     Route: 058
  4. PLO GEL MEDIFLO [Suspect]
     Active Substance: LECITHIN\POLOXAMER 407
     Indication: PRODUCT USED FOR UNKNOWN INDICATION
     Dosage: UNK
     Route: 065
  5. OPSUMIT [Concomitant]
     Active Substance: MACITENTAN
     Indication: PULMONARY HYPERTENSION
     Dosage: 10 MG, QD (1 TIME EVERY 1 DAY)
     Route: 048

REACTIONS (15)
  - Weight increased [Unknown]
  - Pneumonia [Unknown]
  - Therapy non-responder [Unknown]
  - Nausea [Not Recovered/Not Resolved]
  - Nasopharyngitis [Unknown]
  - Pyrexia [Unknown]
  - Infusion site pain [Not Recovered/Not Resolved]
  - Sickle cell anaemia [Unknown]
  - Pneumonitis [Unknown]
  - Cough [Unknown]
  - Dyspnoea [Unknown]
  - Weight decreased [Unknown]
  - Oedema [Unknown]
  - Peripheral swelling [Unknown]
  - Chest pain [Unknown]

NARRATIVE: CASE EVENT DATE: 2021
